FAERS Safety Report 14910183 (Version 1)
Quarter: 2018Q2

REPORT INFORMATION
  Report Type: Other
  Country: GR (occurrence: GR)
  Receive Date: 20180517
  Receipt Date: 20180517
  Transmission Date: 20180711
  Serious: Yes (Other)
  Sender: FDA-Public Use
  Company Number: GR-RARE DISEASE THERAPEUTICS, INC.-2048013

PATIENT
  Sex: Male

DRUGS (6)
  1. FLUDARABINE [Suspect]
     Active Substance: FLUDARABINE PHOSPHATE
     Route: 065
  2. PURIXAN [Suspect]
     Active Substance: MERCAPTOPURINE
     Indication: ACUTE MYELOID LEUKAEMIA
     Route: 065
  3. METHOTREXATE. [Suspect]
     Active Substance: METHOTREXATE
     Route: 065
     Dates: end: 201401
  4. CYTARABINE. [Suspect]
     Active Substance: CYTARABINE
     Route: 065
  5. IDARUBICIN HYDROCHLORIDE. [Suspect]
     Active Substance: IDARUBICIN HYDROCHLORIDE
     Route: 065
  6. FLUDARABINE [Suspect]
     Active Substance: FLUDARABINE PHOSPHATE
     Route: 065

REACTIONS (6)
  - Infection [Recovered/Resolved]
  - Graft versus host disease in skin [Unknown]
  - Graft versus host disease in gastrointestinal tract [Unknown]
  - Neoplasm recurrence [Unknown]
  - Colitis [Recovered/Resolved]
  - Off label use [Unknown]

NARRATIVE: CASE EVENT DATE: 201709
